FAERS Safety Report 4696746-0 (Version None)
Quarter: 2005Q2

REPORT INFORMATION
  Report Type: 
  Country: None (occurrence: None)
  Receive Date: 20050622
  Receipt Date: 20050616
  Transmission Date: 20051028
  Serious: Yes (Other)
  Sender: FDA-Public Use
  Company Number: 200512045FR

PATIENT
  Age: 35 Year
  Sex: Female

DRUGS (1)
  1. FLAGYL [Suspect]
     Indication: CLOSTRIDIUM COLITIS
     Dates: start: 20050616, end: 20050101

REACTIONS (3)
  - ANGIONEUROTIC OEDEMA [None]
  - FACE OEDEMA [None]
  - RASH [None]
